FAERS Safety Report 9160545 (Version 2)
Quarter: 2013Q1

REPORT INFORMATION
  Report Type: Report from Study
  Country: DE (occurrence: DE)
  Receive Date: 20130313
  Receipt Date: 20130315
  Transmission Date: 20140127
  Serious: No
  Sender: FDA-Public Use
  Company Number: PHHO2013DE003709

PATIENT
  Age: 42 Year
  Sex: Female
  Weight: 62.7 kg

DRUGS (1)
  1. FTY [Suspect]
     Indication: MULTIPLE SCLEROSIS
     Dosage: UNK
     Route: 048
     Dates: start: 20130204

REACTIONS (1)
  - Venous thrombosis limb [Recovered/Resolved]
